FAERS Safety Report 7573901-3 (Version None)
Quarter: 2011Q2

REPORT INFORMATION
  Report Type: 
  Country: None (occurrence: None)
  Receive Date: 20110627
  Receipt Date: 20110616
  Transmission Date: 20111010
  Serious: Yes (Other)
  Sender: FDA-Public Use
  Company Number: B0721994A

PATIENT
  Sex: Female
  Weight: 64 kg

DRUGS (20)
  1. CALCIUM CARBONATE [Concomitant]
     Dosage: 2IUAX PER DAY
     Route: 048
  2. FERRUM [Concomitant]
     Dosage: 1IUAX PER DAY
     Route: 048
     Dates: end: 20110523
  3. DEPAS [Concomitant]
     Dosage: 1IUAX PER DAY
     Route: 048
  4. AMOBAN [Concomitant]
     Dosage: 7.5MG PER DAY
     Route: 048
  5. METHYCOBAL [Concomitant]
     Dosage: 3IUAX PER DAY
     Route: 048
  6. KETOPROFEN [Concomitant]
     Route: 062
  7. GASMOTIN [Concomitant]
     Dosage: 3IUAX PER DAY
     Route: 048
  8. PURSENNID [Concomitant]
     Dosage: 60MG PER DAY
     Route: 048
  9. RENAGEL [Concomitant]
     Dosage: 500MG PER DAY
     Route: 048
  10. ACETAMINOPHEN [Concomitant]
     Dosage: 2G PER DAY
     Route: 048
  11. ALLERMIST [Suspect]
     Dosage: 110MCG PER DAY
     Route: 045
     Dates: start: 20110412, end: 20110523
  12. RISUMIC [Concomitant]
     Dosage: 1.5IUAX PER DAY
     Route: 048
  13. ISOSORBIDE DINITRATE [Concomitant]
     Dosage: 40MG PER DAY
     Route: 048
  14. ALLEGRA [Concomitant]
     Dosage: 120MG PER DAY
     Route: 048
  15. LANSOPRAZOLE [Concomitant]
     Dosage: 15MG PER DAY
     Route: 048
  16. LOPRESSOR [Concomitant]
     Dosage: 60MG PER DAY
     Route: 048
  17. SELBEX [Concomitant]
     Dosage: 2IUAX PER DAY
     Route: 048
  18. ALOSENN [Concomitant]
     Dosage: 2IUAX PER DAY
     Route: 048
  19. SIGMART [Concomitant]
     Dosage: 3IUAX PER DAY
     Route: 048
  20. NOVORAPID [Concomitant]
     Route: 058

REACTIONS (1)
  - OESOPHAGEAL CANDIDIASIS [None]
